FAERS Safety Report 4517088-X (Version None)
Quarter: 2004Q4

REPORT INFORMATION
  Report Type: 
  Country: None (occurrence: None)
  Receive Date: 20041130
  Receipt Date: 20041116
  Transmission Date: 20050328
  Serious: Yes (Death, Hospitalization)
  Sender: FDA-Public Use
  Company Number: FR_041005059

PATIENT
  Age: 41 Year
  Sex: Male

DRUGS (3)
  1. ZYPREXA [Suspect]
     Indication: BIPOLAR I DISORDER
     Dosage: 10 MG/1 DAY
     Dates: start: 20040915, end: 20041015
  2. PAROXETINE HCL [Concomitant]
  3. URBANYL (CLOBAZAM) [Concomitant]

REACTIONS (8)
  - BLOOD LACTATE DEHYDROGENASE INCREASED [None]
  - CONVULSION [None]
  - HYPERCREATININAEMIA [None]
  - HYPERNATRAEMIA [None]
  - HYPERTHERMIA [None]
  - LABORATORY TEST ABNORMAL [None]
  - LEUKOCYTOSIS [None]
  - NEUROLEPTIC MALIGNANT SYNDROME [None]
